FAERS Safety Report 10369999 (Version 2)
Quarter: 2014Q3

REPORT INFORMATION
  Report Type: Spontaneous
  Country: GB (occurrence: GB)
  Receive Date: 20140808
  Receipt Date: 20140826
  Transmission Date: 20150326
  Serious: Yes (Hospitalization)
  Sender: FDA-Public Use
  Company Number: GB-ROCHE-1446814

PATIENT
  Sex: Female
  Weight: 51 kg

DRUGS (1)
  1. MABTHERA [Suspect]
     Active Substance: RITUXIMAB
     Indication: RHEUMATOID ARTHRITIS
     Route: 042

REACTIONS (4)
  - Leukoencephalopathy [Not Recovered/Not Resolved]
  - Coordination abnormal [Unknown]
  - Visual impairment [Unknown]
  - Memory impairment [Unknown]
